FAERS Safety Report 9001373 (Version 1)
Quarter: 2013Q1

REPORT INFORMATION
  Report Type: Spontaneous
  Country: IT (occurrence: IT)
  Receive Date: 20130107
  Receipt Date: 20130107
  Transmission Date: 20140127
  Serious: Yes (Life-Threatening)
  Sender: FDA-Public Use
  Company Number: IT-MYLANLABS-2013S1000050

PATIENT
  Age: 79 Year
  Sex: Female

DRUGS (1)
  1. TICLOPIDINE [Suspect]
     Indication: ANTIPLATELET THERAPY
     Route: 048
     Dates: start: 20070101, end: 20120723

REACTIONS (3)
  - Subarachnoid haemorrhage [Recovering/Resolving]
  - Subdural haematoma [Recovering/Resolving]
  - Skull fracture [Recovering/Resolving]
